FAERS Safety Report 11183673 (Version 1)
Quarter: 2015Q2

REPORT INFORMATION
  Report Type: Spontaneous
  Country: US (occurrence: None)
  Receive Date: 20150610
  Receipt Date: 20150610
  Transmission Date: 20150821
  Serious: Yes (Life-Threatening, Disabling)
  Sender: FDA-Public Use
  Company Number: None

PATIENT
  Age: 64 Year
  Sex: Female
  Weight: 66.68 kg

DRUGS (2)
  1. AMLODIPINE BESYLATE. [Concomitant]
     Active Substance: AMLODIPINE BESYLATE
  2. LEVOTHYROXIN 25 MCG [Suspect]
     Active Substance: LEVOTHYROXINE
     Indication: HYPOTHYROIDISM
     Dosage: 30 PILLS 1 PILL A DAY BY MOUTH
     Route: 048
     Dates: start: 20140101, end: 20141231

REACTIONS (5)
  - Hyperkalaemia [None]
  - Palpitations [None]
  - Hypertension [None]
  - Blood potassium increased [None]
  - Cardiac murmur [None]

NARRATIVE: CASE EVENT DATE: 20140531
